FAERS Safety Report 18512959 (Version 2)
Quarter: 2021Q1

REPORT INFORMATION
  Report Type: Spontaneous
  Country: JP (occurrence: JP)
  Receive Date: 20201117
  Receipt Date: 20210120
  Transmission Date: 20210419
  Serious: Yes (Death, Other)
  Sender: FDA-Public Use
  Company Number: JP-PFIZER INC-2020345273

PATIENT
  Sex: Female

DRUGS (2)
  1. IBRANCE [Suspect]
     Active Substance: PALBOCICLIB
     Dosage: 75 MG, CYCLIC (THREE WEEKS ON THEN ONE WEEK OFF)
  2. IBRANCE [Suspect]
     Active Substance: PALBOCICLIB
     Dosage: 125 MG

REACTIONS (7)
  - Anaemia [Unknown]
  - Hepatic failure [Fatal]
  - Tumour marker increased [Unknown]
  - Neoplasm progression [Unknown]
  - Aspartate aminotransferase increased [Not Recovered/Not Resolved]
  - Neutropenia [Unknown]
  - Alanine aminotransferase increased [Not Recovered/Not Resolved]
